FAERS Safety Report 24125281 (Version 1)
Quarter: 2024Q3

REPORT INFORMATION
  Report Type: Report from Study
  Country: US (occurrence: US)
  Receive Date: 20240723
  Receipt Date: 20240723
  Transmission Date: 20241017
  Serious: Yes (Death, Other)
  Sender: ROCHE
  Company Number: US-ROCHE-10000027016

PATIENT

DRUGS (2)
  1. ATEZOLIZUMAB [Suspect]
     Active Substance: ATEZOLIZUMAB
     Indication: Hepatocellular carcinoma
     Route: 065
  2. BEVACIZUMAB [Suspect]
     Active Substance: BEVACIZUMAB
     Indication: Hepatocellular carcinoma
     Route: 065

REACTIONS (6)
  - Gastrointestinal haemorrhage [Fatal]
  - Haemorrhage intracranial [Fatal]
  - Fatigue [Unknown]
  - Hypertension [Unknown]
  - Bleeding varicose vein [Unknown]
  - Epistaxis [Unknown]
